FAERS Safety Report 5855544-2 (Version None)
Quarter: 2008Q3

REPORT INFORMATION
  Report Type: 
  Country: None (occurrence: None)
  Receive Date: 20080821
  Receipt Date: 20080805
  Transmission Date: 20090109
  Serious: Yes (Death, Hospitalization)
  Sender: FDA-Public Use
  Company Number: 2008BI013278

PATIENT
  Sex: Male

DRUGS (1)
  1. TYSABRI [Suspect]
     Indication: MULTIPLE SCLEROSIS
     Dosage: 300 MG;QM;IV
     Route: 042
     Dates: start: 20060929, end: 20071109

REACTIONS (6)
  - DRUG INEFFECTIVE [None]
  - FALL [None]
  - INFECTION [None]
  - RENAL FAILURE [None]
  - SEPSIS [None]
  - SYNCOPE [None]
